FAERS Safety Report 20798995 (Version 1)
Quarter: 2022Q2

REPORT INFORMATION
  Report Type: Spontaneous
  Country: US (occurrence: US)
  Receive Date: 20220507
  Receipt Date: 20220507
  Transmission Date: 20220720
  Serious: No
  Sender: FDA-Public Use
  Company Number: US-JNJFOC-20220502763

PATIENT
  Age: 13 Year
  Sex: Male
  Weight: 49.940 kg

DRUGS (5)
  1. STELARA [Suspect]
     Active Substance: USTEKINUMAB
     Indication: Psoriasis
     Route: 058
  2. BETAMETHASONE [Concomitant]
     Active Substance: BETAMETHASONE
  3. GUANFACINE [Concomitant]
     Active Substance: GUANFACINE
  4. LORATADINE [Concomitant]
     Active Substance: LORATADINE
  5. CALCIPOTRIENE [Concomitant]
     Active Substance: CALCIPOTRIENE

REACTIONS (2)
  - Product dose omission issue [Unknown]
  - Product storage error [Unknown]

NARRATIVE: CASE EVENT DATE: 20220401
